FAERS Safety Report 20533553 (Version 2)
Quarter: 2022Q1

REPORT INFORMATION
  Report Type: Report from Study
  Country: CO (occurrence: CO)
  Receive Date: 20220301
  Receipt Date: 20220316
  Transmission Date: 20220423
  Serious: Yes (Hospitalization)
  Sender: FDA-Public Use
  Company Number: CO-NOVARTISPH-NVSC2022CO044092

PATIENT
  Age: 12 Year
  Sex: Female
  Weight: 34.5 kg

DRUGS (2)
  1. OMNITROPE [Suspect]
     Active Substance: SOMATROPIN
     Indication: Epiphyses delayed fusion
     Dosage: 1 MG, QD
     Route: 058
     Dates: start: 20210830
  2. OMNITROPE [Suspect]
     Active Substance: SOMATROPIN
     Dosage: 1 MG, QD
     Route: 058
     Dates: start: 20210903

REACTIONS (6)
  - Asphyxia [Unknown]
  - Oxygen saturation decreased [Recovering/Resolving]
  - Influenza [Unknown]
  - Bronchospasm [Unknown]
  - Product use in unapproved indication [Unknown]
  - Product supply issue [Unknown]

NARRATIVE: CASE EVENT DATE: 20220221
